FAERS Safety Report 10274626 (Version 1)
Quarter: 2014Q3

REPORT INFORMATION
  Report Type: Spontaneous
  Country: GB (occurrence: GB)
  Receive Date: 20140702
  Receipt Date: 20140702
  Transmission Date: 20150326
  Serious: Yes (Other)
  Sender: FDA-Public Use
  Company Number: PHHY2014GB078885

PATIENT
  Age: 76 Year
  Sex: Male
  Weight: 65 kg

DRUGS (15)
  1. ASPIRIN. [Concomitant]
     Active Substance: ASPIRIN
     Dates: start: 20140303
  2. FENBID [Concomitant]
     Active Substance: IBUPROFEN
     Dates: start: 20140320, end: 20140515
  3. OMEPRAZOLE. [Concomitant]
     Active Substance: OMEPRAZOLE
     Dates: start: 20140303
  4. METFORMIN [Suspect]
     Active Substance: METFORMIN HYDROCHLORIDE
     Dates: start: 20140303
  5. DOUBLEBASE [Concomitant]
     Active Substance: ISOPROPYL MYRISTATE\PARAFFIN
     Dates: start: 20140303, end: 20140610
  6. FULTIUM [Concomitant]
     Dates: start: 20140203
  7. MOVICOL [Concomitant]
     Active Substance: POLYETHYLENE GLYCOL 3350\POTASSIUM CHLORIDE\SODIUM BICARBONATE\SODIUM CHLORIDE
     Dates: start: 20140523, end: 20140602
  8. PROCHLORPERAZINE. [Concomitant]
     Active Substance: PROCHLORPERAZINE
     Dates: start: 20140319
  9. BISACODYL. [Concomitant]
     Active Substance: BISACODYL
     Dates: start: 20140303
  10. NAPROXEN. [Concomitant]
     Active Substance: NAPROXEN
     Dates: start: 20140417, end: 20140530
  11. E45 [Concomitant]
     Dates: start: 20140331, end: 20140528
  12. EPAXAL [Concomitant]
     Dates: start: 20140417, end: 20140418
  13. LOSARTAN [Concomitant]
     Active Substance: LOSARTAN
     Dates: start: 20140303
  14. PARACETAMOL [Concomitant]
     Active Substance: ACETAMINOPHEN
     Dates: start: 20140502, end: 20140530
  15. ALFUZOSIN [Concomitant]
     Active Substance: ALFUZOSIN
     Dates: start: 20140303

REACTIONS (1)
  - Rash macular [Unknown]

NARRATIVE: CASE EVENT DATE: 20140616
